FAERS Safety Report 6880698-9 (Version None)
Quarter: 2010Q3

REPORT INFORMATION
  Report Type: 
  Country: None (occurrence: None)
  Receive Date: 20100728
  Receipt Date: 20100720
  Transmission Date: 20110219
  Serious: Yes (Disabling, Other)
  Sender: FDA-Public Use
  Company Number: US-BAYER-201010224NA

PATIENT
  Age: 43 Year
  Sex: Female

DRUGS (1)
  1. YASMIN [Suspect]
     Indication: PRODUCT USED FOR UNKNOWN INDICATION
     Route: 048
     Dates: start: 20040101, end: 20060625

REACTIONS (7)
  - COORDINATION ABNORMAL [None]
  - DEEP VEIN THROMBOSIS [None]
  - FATIGUE [None]
  - HEMIPARESIS [None]
  - ISCHAEMIC STROKE [None]
  - MEMORY IMPAIRMENT [None]
  - PULMONARY EMBOLISM [None]
